FAERS Safety Report 7741617-6 (Version None)
Quarter: 2011Q3

REPORT INFORMATION
  Report Type: 
  Country: None (occurrence: None)
  Receive Date: 20110910
  Receipt Date: 20110901
  Transmission Date: 20111222
  Serious: Yes (Hospitalization)
  Sender: FDA-Public Use
  Company Number: JP-AMGEN-JPNCT2011044148

PATIENT
  Age: 69 Year
  Sex: Male
  Weight: 61 kg

DRUGS (8)
  1. LYRICA [Concomitant]
     Indication: HYPOAESTHESIA
     Route: 048
     Dates: start: 20101221
  2. LENDORMIN DAINIPPO [Concomitant]
     Indication: INSOMNIA
     Route: 048
     Dates: start: 20101227
  3. WARFARIN SODIUM [Concomitant]
     Indication: PROPHYLAXIS
     Dosage: 1.5 MG, QD
     Route: 048
     Dates: start: 20091217
  4. NAPROXEN [Concomitant]
     Indication: TUMOUR ASSOCIATED FEVER
     Route: 048
     Dates: start: 20110727
  5. FAMOTIDINE [Concomitant]
     Indication: GASTRITIS
     Route: 048
     Dates: start: 20100128
  6. PANITUMUMAB [Suspect]
     Indication: COLORECTAL CANCER
     Dosage: UNK UNK, Q2WK
     Route: 041
     Dates: start: 20110809, end: 20110809
  7. HIRUDOID [Concomitant]
     Indication: PROPHYLAXIS
     Route: 062
     Dates: start: 20110809
  8. PLETAL [Concomitant]
     Indication: PROPHYLAXIS
     Route: 048
     Dates: start: 20091217

REACTIONS (2)
  - DIARRHOEA [None]
  - DERMATITIS ACNEIFORM [None]
